FAERS Safety Report 10919781 (Version 1)
Quarter: 2015Q1

REPORT INFORMATION
  Report Type: Report from Study
  Country: JP (occurrence: JP)
  Receive Date: 20150317
  Receipt Date: 20150317
  Transmission Date: 20150721
  Serious: Yes (Hospitalization)
  Sender: FDA-Public Use
  Company Number: JP-ROCHE-1552078

PATIENT
  Age: 62 Year
  Sex: Male

DRUGS (19)
  1. EPADEL-S [Concomitant]
     Active Substance: ETHYL ICOSAPENTATE\ICOSAPENT
     Dosage: DOSAGE IS UNCERTAIN.
     Route: 065
  2. TENELIA [Concomitant]
     Active Substance: CITALOPRAM HYDROBROMIDE
     Dosage: DOSAGE IS UNCERTAIN.
     Route: 065
  3. BAYASPIRIN [Concomitant]
     Active Substance: ASPIRIN
     Dosage: DOSAGE IS UNCERTAIN.
     Route: 065
  4. PLETAAL [Concomitant]
     Active Substance: CILOSTAZOL
     Dosage: DOSAGE IS UNCERTAIN.
     Route: 065
  5. CINACALCET HYDROCHLORIDE [Concomitant]
     Active Substance: CINACALCET HYDROCHLORIDE
     Dosage: DOSAGE IS UNCERTAIN.
     Route: 065
  6. AMLODIPINE [Concomitant]
     Active Substance: AMLODIPINE BESYLATE
     Dosage: DOSAGE IS UNCERTAIN.
     Route: 065
  7. OLMETEC [Concomitant]
     Active Substance: OLMESARTAN MEDOXOMIL
     Dosage: DOSAGE IS UNCERTAIN.
     Route: 065
  8. ACTOS [Concomitant]
     Active Substance: PIOGLITAZONE HYDROCHLORIDE
     Dosage: DOSAGE IS UNCERTAIN.
     Route: 065
  9. ROCALTROL [Concomitant]
     Active Substance: CALCITRIOL
     Dosage: DOSAGE IS UNCERTAIN.
     Route: 048
  10. ARTIST [Concomitant]
     Active Substance: CARVEDILOL
     Dosage: DOSAGE IS UNCERTAIN.
     Route: 065
  11. RENAGEL [Concomitant]
     Active Substance: SEVELAMER HYDROCHLORIDE
     Dosage: DOSAGE IS UNCERTAIN.
     Route: 048
  12. ZETIA [Concomitant]
     Active Substance: EZETIMIBE
     Dosage: DOSAGE IS UNCERTAIN.
     Route: 065
  13. RASTINON [Concomitant]
     Dosage: DOSAGE IS UNCERTAIN.
     Route: 065
  14. FESIN (JAPAN) [Concomitant]
     Active Substance: IRON SUCROSE
     Dosage: DOSAGE IS UNCERTAIN.
     Route: 065
  15. METHOXY POLYETHYLENE GLYCOL-EPOETIN BETA [Suspect]
     Active Substance: PEGZEREPOETIN ALFA
     Indication: NEPHROGENIC ANAEMIA
     Dosage: LAST DOSE ON 06/JUN/2014.
     Route: 065
     Dates: start: 20130906
  16. TRAZENTA [Concomitant]
     Active Substance: LINAGLIPTIN
     Dosage: DOSAGE IS UNCERTAIN.
     Route: 065
  17. CALTAN [Concomitant]
     Active Substance: CALCIUM CARBONATE
     Dosage: DOSAGE IS UNCERTAIN.
     Route: 065
  18. VOGLIBOSE [Concomitant]
     Active Substance: VOGLIBOSE
     Dosage: DOSAGE IS UNCERTAIN.
     Route: 065
  19. PANALDINE [Concomitant]
     Active Substance: TICLOPIDINE HYDROCHLORIDE
     Dosage: DOSAGE IS UNCERTAIN.
     Route: 065

REACTIONS (1)
  - Lacunar infarction [Recovering/Resolving]

NARRATIVE: CASE EVENT DATE: 20131224
